FAERS Safety Report 24743775 (Version 1)
Quarter: 2024Q4

REPORT INFORMATION
  Report Type: Spontaneous
  Country: ES (occurrence: ES)
  Receive Date: 20241217
  Receipt Date: 20241217
  Transmission Date: 20250115
  Serious: Yes (Death, Other)
  Sender: RANBAXY
  Company Number: None

PATIENT
  Age: 25 Year
  Sex: Male

DRUGS (5)
  1. CYCLOSPORINE [Suspect]
     Active Substance: CYCLOSPORINE
     Indication: Prophylaxis against transplant rejection
     Dosage: UNK
     Route: 065
     Dates: end: 2005
  2. PREDNISONE [Suspect]
     Active Substance: PREDNISONE
     Indication: Cord blood transplant therapy
     Dosage: UNK
     Route: 065
  3. FLUDARABINE [Suspect]
     Active Substance: FLUDARABINE PHOSPHATE
     Indication: Acute myeloid leukaemia
     Dosage: 30 MG/M2/D
     Route: 065
     Dates: start: 200505
  4. CYCLOPHOSPHAMIDE [Suspect]
     Active Substance: CYCLOPHOSPHAMIDE
     Indication: Acute myeloid leukaemia
     Dosage: 60 MG/KG/D
     Route: 065
     Dates: start: 200505
  5. LAPINE T-LYMPHOCYTE IMMUNE GLOBULIN [Concomitant]
     Active Substance: LAPINE T-LYMPHOCYTE IMMUNE GLOBULIN
     Indication: Cord blood transplant therapy
     Dosage: 30 MG/KG/D
     Route: 065

REACTIONS (7)
  - Pyrexia [Fatal]
  - Multiple organ dysfunction syndrome [Fatal]
  - Encephalitis protozoal [Fatal]
  - Myocarditis [Fatal]
  - American trypanosomiasis [Fatal]
  - Condition aggravated [Fatal]
  - Mental disorder [Unknown]

NARRATIVE: CASE EVENT DATE: 20050501
